FAERS Safety Report 5341631-4 (Version None)
Quarter: 2007Q2

REPORT INFORMATION
  Report Type: 
  Country: None (occurrence: None)
  Receive Date: 20070530
  Receipt Date: 20070518
  Transmission Date: 20071010
  Serious: Yes (Other)
  Sender: FDA-Public Use
  Company Number: 2007317746

PATIENT
  Age: 70 Year
  Sex: Male
  Weight: 70 kg

DRUGS (4)
  1. NICORETTE [Suspect]
     Indication: SMOKING CESSATION THERAPY
     Dosage: 1 PATCH DAILY (15 MG), TRANSDERMAL
     Route: 062
     Dates: start: 20070420, end: 20070421
  2. XEFO (LORNOXICAM) [Concomitant]
  3. PREDNISONE TAB [Concomitant]
  4. TRAMADOL HCL [Concomitant]

REACTIONS (3)
  - ERYTHEMA [None]
  - HYPERSENSITIVITY [None]
  - LUNG NEOPLASM MALIGNANT [None]
